FAERS Safety Report 14783865 (Version 1)
Quarter: 2018Q2

REPORT INFORMATION
  Report Type: Spontaneous
  Country: US (occurrence: US)
  Receive Date: 20180420
  Receipt Date: 20180420
  Transmission Date: 20180711
  Serious: Yes (Other)
  Sender: FDA-Public Use
  Company Number: US-PFIZER INC-2018157774

PATIENT
  Age: 41 Year
  Sex: Female

DRUGS (3)
  1. NOREPINEPHRINE BITARTRATE. [Suspect]
     Active Substance: NOREPINEPHRINE BITARTRATE
     Dosage: UNK
  2. MILRINONE [Concomitant]
     Active Substance: MILRINONE
     Indication: CEREBRAL HYPOPERFUSION
     Dosage: UNK
  3. VASOPRESSIN. [Concomitant]
     Active Substance: VASOPRESSIN
     Dosage: UNK

REACTIONS (2)
  - Heart injury [Unknown]
  - Drug ineffective [Unknown]
